FAERS Safety Report 4511334-4 (Version None)
Quarter: 2004Q4

REPORT INFORMATION
  Report Type: 
  Country: None (occurrence: None)
  Receive Date: 20041124
  Receipt Date: 20041124
  Transmission Date: 20050328
  Serious: Yes (Disabling)
  Sender: FDA-Public Use
  Company Number: None

PATIENT
  Sex: Female
  Weight: 74.8435 kg

DRUGS (5)
  1. TEGRETOL [Suspect]
     Indication: ANXIETY
     Dosage: SEE B5
     Dates: start: 20010101, end: 20010401
  2. TEGRETOL [Suspect]
     Indication: BIPOLAR DISORDER
     Dosage: SEE B5
     Dates: start: 20010101, end: 20010401
  3. RISPERDAL [Concomitant]
  4. WELLBUTRIN [Concomitant]
  5. EFFEXOR [Concomitant]

REACTIONS (16)
  - ABDOMINAL PAIN [None]
  - ACNE CYSTIC [None]
  - BLADDER DISORDER [None]
  - BLADDER PAIN [None]
  - BLADDER SPASM [None]
  - CYSTITIS INTERSTITIAL [None]
  - DIARRHOEA [None]
  - DYSPEPSIA [None]
  - GASTRITIS [None]
  - MEDICATION ERROR [None]
  - MICTURITION URGENCY [None]
  - NOCTURIA [None]
  - PELVIC MUSCLES INADEQUATE [None]
  - POLLAKIURIA [None]
  - URINARY BLADDER HAEMORRHAGE [None]
  - URINARY INCONTINENCE [None]
